FAERS Safety Report 19360924 (Version 1)
Quarter: 2021Q2

REPORT INFORMATION
  Report Type: Spontaneous
  Country: US (occurrence: US)
  Receive Date: 20210601
  Receipt Date: 20210601
  Transmission Date: 20210717
  Serious: Yes (Other)
  Sender: FDA-Public Use
  Company Number: US-PURDUE-USA-2020-0232071

PATIENT
  Sex: Female

DRUGS (7)
  1. OXYCODONE/ ACETAMINOPHEN TABLETS [Suspect]
     Active Substance: ACETAMINOPHEN\OXYCODONE HYDROCHLORIDE
     Indication: FIBROMYALGIA
     Dosage: UNKNOWN
     Route: 048
  2. SUBOXONE [Suspect]
     Active Substance: BUPRENORPHINE HYDROCHLORIDE\NALOXONE HYDROCHLORIDE
     Indication: FIBROMYALGIA
     Dosage: UNKNOWN
     Route: 065
  3. OXYCODONE HCL TABLETS (RHODES 91?490) [Suspect]
     Active Substance: OXYCODONE HYDROCHLORIDE
     Indication: FIBROMYALGIA
     Dosage: UNKNOWN
     Route: 048
  4. OXY IR [Suspect]
     Active Substance: OXYCODONE HYDROCHLORIDE
     Indication: FIBROMYALGIA
     Dosage: 30 MG, Q6H (2 EVERY 6 HRS)
     Route: 048
  5. HYDROCODONE BITARTRATE AND ACETAMINOPHEN [Suspect]
     Active Substance: ACETAMINOPHEN\HYDROCODONE BITARTRATE
     Indication: FIBROMYALGIA
     Dosage: UNKNOWN
     Route: 048
  6. OXY IR [Suspect]
     Active Substance: OXYCODONE HYDROCHLORIDE
     Dosage: 240 MG, UNK
     Route: 048
  7. HEROIN [Suspect]
     Active Substance: DIAMORPHINE
     Indication: FIBROMYALGIA
     Dosage: UNKNOWN
     Route: 065

REACTIONS (3)
  - Overdose [Unknown]
  - Near death experience [Unknown]
  - Drug dependence [Unknown]
